FAERS Safety Report 25999909 (Version 2)
Quarter: 2025Q4

REPORT INFORMATION
  Report Type: Spontaneous
  Country: JP (occurrence: JP)
  Receive Date: 20251105
  Receipt Date: 20251210
  Transmission Date: 20260117
  Serious: Yes (Life-Threatening)
  Sender: SUNOVION
  Company Number: JP-SMPA-2025SPA001521

PATIENT
  Age: 43 Year
  Sex: Female

DRUGS (1)
  1. RELUGOLIX [Suspect]
     Active Substance: RELUGOLIX
     Indication: Uterine leiomyoma
     Dosage: 40 MG
     Route: 048
     Dates: start: 20241129, end: 20241231

REACTIONS (1)
  - Genital haemorrhage [Recovered/Resolved]

NARRATIVE: CASE EVENT DATE: 20241230
